FAERS Safety Report 6322032-9 (Version None)
Quarter: 2009Q3

REPORT INFORMATION
  Report Type: 
  Country: None (occurrence: None)
  Receive Date: 20090821
  Receipt Date: 20090821
  Transmission Date: 20100115
  Serious: Yes (Other)
  Sender: FDA-Public Use
  Company Number: None

PATIENT
  Age: 66 Year
  Sex: Female
  Weight: 77.1115 kg

DRUGS (1)
  1. HUMIRA [Suspect]
     Indication: PSORIATIC ARTHROPATHY
     Dosage: 49 MG. EVERY 2 WEEKS SQ
     Route: 058
     Dates: start: 20090612, end: 20090714

REACTIONS (4)
  - ARTHROPATHY [None]
  - LUPUS-LIKE SYNDROME [None]
  - PRODUCT QUALITY ISSUE [None]
  - PSORIASIS [None]
